FAERS Safety Report 5160954-5 (Version None)
Quarter: 2006Q4

REPORT INFORMATION
  Report Type: 
  Country: None (occurrence: None)
  Receive Date: 20061130
  Receipt Date: 20050926
  Transmission Date: 20070319
  Serious: Yes (Other)
  Sender: FDA-Public Use
  Company Number: US-BRISTOL-MYERS SQUIBB COMPANY-13274154

PATIENT

DRUGS (1)
  1. AVALIDE [Suspect]

REACTIONS (1)
  - ANGIONEUROTIC OEDEMA [None]
